FAERS Safety Report 9682794 (Version 1)
Quarter: 2013Q4

REPORT INFORMATION
  Report Type: Report from Study
  Country: BR (occurrence: BR)
  Receive Date: 20131112
  Receipt Date: 20131112
  Transmission Date: 20140711
  Serious: Yes (Hospitalization, Other)
  Sender: FDA-Public Use
  Company Number: PHHY2013BR127454

PATIENT
  Age: 81 Year
  Sex: Female

DRUGS (7)
  1. DIOVAN [Suspect]
     Indication: HYPERTENSION
     Dosage: 1 DF (320 MG), DAILY
     Route: 048
  2. ADALAT [Suspect]
     Indication: HYPERTENSION
     Dosage: 1 DF, DAILY
  3. CLORANA [Suspect]
     Indication: HYPERTENSION
     Dosage: 1 DF, DAILY
     Route: 048
  4. SOMALGIN [Suspect]
     Indication: HYPERTENSION
     Dosage: 1 DF, DAILY
     Route: 048
  5. HIDANTAL [Concomitant]
     Indication: CONVULSION PROPHYLAXIS
     Dosage: 1 DF, (AT NIGHT)
     Route: 048
  6. PAXTRAT [Concomitant]
     Indication: PROPHYLAXIS
     Dosage: 1 DF, DAILY
     Route: 048
  7. CLINFAR [Concomitant]
     Indication: BLOOD CHOLESTEROL INCREASED
     Dosage: 1 DF (10 MG), DAILY
     Route: 048

REACTIONS (6)
  - Stress [Recovered/Resolved]
  - Ulcer [Recovering/Resolving]
  - Vomiting [Recovering/Resolving]
  - Blood pressure increased [Recovered/Resolved]
  - White blood cell count increased [Unknown]
  - Weight decreased [Recovering/Resolving]
